FAERS Safety Report 23955101 (Version 1)
Quarter: 2024Q2

REPORT INFORMATION
  Report Type: Spontaneous
  Country: PT (occurrence: PT)
  Receive Date: 20240610
  Receipt Date: 20240610
  Transmission Date: 20240715
  Serious: Yes (Hospitalization, Other)
  Sender: FDA-Public Use
  Company Number: PT-SA-2024SA169670

PATIENT
  Age: 57 Year
  Sex: Female

DRUGS (7)
  1. ANTI-THYMOCYTE GLOBULIN (RABBIT) NOS [Suspect]
     Active Substance: LAPINE T-LYMPHOCYTE IMMUNE GLOBULIN
     Indication: Bone marrow failure
     Dosage: UNK
     Route: 042
     Dates: start: 2002
  2. METHYLPREDNISOLONE [Suspect]
     Active Substance: METHYLPREDNISOLONE
     Indication: Bone marrow failure
     Dosage: UNK
     Route: 042
     Dates: start: 2002
  3. CYCLOSPORINE [Suspect]
     Active Substance: CYCLOSPORINE
     Indication: Bone marrow failure
     Dosage: UNK
     Route: 048
     Dates: start: 2002
  4. AMPHOTERICIN B [Suspect]
     Active Substance: AMPHOTERICIN B
     Indication: Mucormycosis
     Dosage: 6 MG/KG, QD
     Dates: start: 2003, end: 2004
  5. AMPHOTERICIN B [Suspect]
     Active Substance: AMPHOTERICIN B
     Dosage: UNK
     Dates: start: 200402, end: 2004
  6. AMPHOTERICIN B [Suspect]
     Active Substance: AMPHOTERICIN B
     Dosage: UNK, NASAL WASHINGS
     Route: 061
     Dates: start: 200402, end: 200402
  7. AMPHOTERICIN B [Suspect]
     Active Substance: AMPHOTERICIN B
     Dosage: UNK
     Dates: start: 200405, end: 2004

REACTIONS (17)
  - Mucormycosis [Recovered/Resolved]
  - Headache [Recovered/Resolved]
  - Periorbital oedema [Recovered/Resolved]
  - Palatal oedema [Recovered/Resolved]
  - Decreased appetite [Recovered/Resolved]
  - Asthenia [Recovered/Resolved]
  - Hyperthermia [Recovered/Resolved]
  - Eyelid oedema [Recovered/Resolved]
  - Conjunctival oedema [Recovered/Resolved]
  - Necrosis [Recovered/Resolved]
  - Cellulitis orbital [Recovered/Resolved]
  - Diplopia [Recovered/Resolved]
  - Facial pain [Recovered/Resolved]
  - Eyelid ptosis [Recovered/Resolved]
  - Diabetes mellitus [Unknown]
  - Renal failure [Unknown]
  - Pneumonia [Unknown]

NARRATIVE: CASE EVENT DATE: 20030101
